FAERS Safety Report 12550916 (Version 3)
Quarter: 2016Q3

REPORT INFORMATION
  Report Type: Report from Study
  Country: CA (occurrence: CA)
  Receive Date: 20160712
  Receipt Date: 20160810
  Transmission Date: 20161109
  Serious: Yes (Other)
  Sender: FDA-Public Use
  Company Number: PHHY2016CA087263

PATIENT
  Age: 53 Year
  Sex: Female

DRUGS (5)
  1. EXEMESTANE. [Concomitant]
     Active Substance: EXEMESTANE
     Indication: PRODUCT USED FOR UNKNOWN INDICATION
     Route: 065
  2. AFINITOR [Suspect]
     Active Substance: EVEROLIMUS
     Dosage: 10 MG QD
     Route: 048
     Dates: start: 20160610
  3. AFINITOR [Suspect]
     Active Substance: EVEROLIMUS
     Indication: BREAST CANCER
     Dosage: 5 MG, QD
     Route: 048
  4. AFINITOR [Suspect]
     Active Substance: EVEROLIMUS
     Dosage: 10 MG, QD
     Route: 048
     Dates: start: 20160726
  5. PAMIDRONATE [Suspect]
     Active Substance: PAMIDRONATE DISODIUM
     Indication: BONE METABOLISM DISORDER
     Dosage: UNK
     Route: 042

REACTIONS (10)
  - Fatigue [Recovering/Resolving]
  - Spinal pain [Recovered/Resolved]
  - Temporomandibular joint syndrome [Unknown]
  - Ear pain [Unknown]
  - Stomatitis [Unknown]
  - Hypokinesia [Unknown]
  - Pain [Recovering/Resolving]
  - Headache [Recovered/Resolved]
  - Skin lesion [Unknown]
  - Nephrolithiasis [Unknown]

NARRATIVE: CASE EVENT DATE: 20160623
